FAERS Safety Report 5930473-4 (Version None)
Quarter: 2008Q4

REPORT INFORMATION
  Report Type: 
  Country: None (occurrence: None)
  Receive Date: 20081023
  Receipt Date: 20060810
  Transmission Date: 20090506
  Serious: Yes (Death, Hospitalization, Other)
  Sender: FDA-Public Use
  Company Number: 2006AL002507

PATIENT
  Age: 89 Year

DRUGS (6)
  1. MIRTAZAPINE [Suspect]
     Indication: CONFUSIONAL STATE
     Dosage: 10 MG;QD; PO
     Route: 048
     Dates: start: 20060613, end: 20060614
  2. ASPIRIN [Concomitant]
  3. BISOPROLOL FUMARATE [Concomitant]
  4. DIGOXIN [Concomitant]
  5. ACETAMINOPHEN [Concomitant]
  6. VALPROATE SODIUM [Concomitant]

REACTIONS (2)
  - LOSS OF CONSCIOUSNESS [None]
  - SOMNOLENCE [None]
